FAERS Safety Report 4442699-X (Version None)
Quarter: 2004Q3

REPORT INFORMATION
  Report Type: 
  Country: None (occurrence: None)
  Receive Date: 20040903
  Receipt Date: 20040618
  Transmission Date: 20050211
  Serious: Yes (Other)
  Sender: FDA-Public Use
  Company Number: 2004UW12741

PATIENT
  Age: 48 Year
  Sex: Male
  Weight: 102.0593 kg

DRUGS (2)
  1. CRESTOR [Suspect]
     Indication: BLOOD CHOLESTEROL INCREASED
     Dosage: 10 MG PO
     Route: 048
  2. SYNTHROID [Concomitant]

REACTIONS (4)
  - BACK PAIN [None]
  - FATIGUE [None]
  - NASOPHARYNGITIS [None]
  - TEMPERATURE INTOLERANCE [None]
